FAERS Safety Report 4802135-8 (Version None)
Quarter: 2005Q4

REPORT INFORMATION
  Report Type: 
  Country: None (occurrence: None)
  Receive Date: 20051011
  Receipt Date: 20050928
  Transmission Date: 20060501
  Serious: Yes (Other)
  Sender: FDA-Public Use
  Company Number: 2005136421

PATIENT
  Sex: Female
  Weight: 29.257 kg

DRUGS (5)
  1. NORVASC [Suspect]
     Indication: HYPERTENSION
     Dosage: 5 MG (5 MG, DAILY)
  2. MONOPRIL [Concomitant]
  3. CLARINEX [Concomitant]
  4. NEXIUM [Concomitant]
  5. ACIPHEX [Concomitant]

REACTIONS (1)
  - DEAFNESS [None]
